FAERS Safety Report 6641519-2 (Version None)
Quarter: 2010Q1

REPORT INFORMATION
  Report Type: 
  Country: None (occurrence: None)
  Receive Date: 20100317
  Receipt Date: 20100317
  Transmission Date: 20100710
  Serious: Yes (Other)
  Sender: FDA-Public Use
  Company Number: None

PATIENT
  Age: 55 Year
  Sex: Female

DRUGS (10)
  1. NAFCILLIN [Suspect]
     Indication: INFECTION
     Dosage: 2G Q4HOURS IV
     Route: 042
     Dates: start: 20091103, end: 20091123
  2. LORAZEPAM [Concomitant]
  3. BENEFIBER [Concomitant]
  4. CALCIUM WITH D [Concomitant]
  5. DEXAMETHASONE [Concomitant]
  6. VALSARTAN [Concomitant]
  7. ASPIRIN [Concomitant]
  8. METOPROLOL TARTRATE [Concomitant]
  9. M.V.I. [Concomitant]
  10. ONDANSETRON [Concomitant]

REACTIONS (2)
  - BLOOD BILIRUBIN INCREASED [None]
  - BLOOD CREATININE INCREASED [None]
